FAERS Safety Report 15691926 (Version 3)
Quarter: 2019Q1

REPORT INFORMATION
  Report Type: Spontaneous
  Country: US (occurrence: US)
  Receive Date: 20181205
  Receipt Date: 20190201
  Transmission Date: 20190417
  Serious: Yes (Death, Life-Threatening, Hospitalization, Other)
  Sender: FDA-Public Use
  Company Number: US-JNJFOC-20181202860

PATIENT
  Age: 45 Year
  Sex: Female

DRUGS (2)
  1. XARELTO [Suspect]
     Active Substance: RIVAROXABAN
     Indication: SUBCLAVIAN ARTERY THROMBOSIS
     Route: 048
     Dates: start: 20140604, end: 20161216
  2. XARELTO [Suspect]
     Active Substance: RIVAROXABAN
     Indication: OFF LABEL USE
     Route: 048
     Dates: start: 20140604, end: 20161216

REACTIONS (6)
  - Acute kidney injury [Unknown]
  - Internal haemorrhage [Unknown]
  - Shock haemorrhagic [Unknown]
  - Off label use [Unknown]
  - Retroperitoneal haematoma [Fatal]
  - Product use in unapproved indication [Unknown]

NARRATIVE: CASE EVENT DATE: 20140604
